FAERS Safety Report 7012412-0 (Version None)
Quarter: 2010Q3

REPORT INFORMATION
  Report Type: 
  Country: None (occurrence: None)
  Receive Date: 20100924
  Receipt Date: 20100915
  Transmission Date: 20110219
  Serious: Yes (Other)
  Sender: FDA-Public Use
  Company Number: CA-ASTRAZENECA-2010SE42626

PATIENT
  Age: 53 Year
  Sex: Male

DRUGS (2)
  1. ATACAND [Suspect]
     Route: 048
     Dates: start: 20100101
  2. ATENOLOL [Concomitant]

REACTIONS (2)
  - ARTHRALGIA [None]
  - PAIN IN EXTREMITY [None]
